FAERS Safety Report 9252740 (Version 1)
Quarter: 2013Q2

REPORT INFORMATION
  Report Type: Spontaneous
  Country: US (occurrence: US)
  Receive Date: 20130424
  Receipt Date: 20130424
  Transmission Date: 20140414
  Serious: No
  Sender: FDA-Public Use
  Company Number: US-009507513-1304USA014423

PATIENT
  Age: 53 Year
  Sex: Male

DRUGS (1)
  1. ZIOPTAN [Suspect]
     Indication: OPEN ANGLE GLAUCOMA
     Dosage: 1 GTT, (ONE DROP EACH EYE)
     Route: 047
     Dates: start: 20121214, end: 20121215

REACTIONS (1)
  - Ocular hyperaemia [Recovered/Resolved]
